FAERS Safety Report 7004335-8 (Version None)
Quarter: 2010Q3

REPORT INFORMATION
  Report Type: 
  Country: None (occurrence: None)
  Receive Date: 20100921
  Receipt Date: 20100909
  Transmission Date: 20110219
  Serious: No
  Sender: FDA-Public Use
  Company Number: US-BIOGENIDEC-2010BI019767

PATIENT
  Age: 62 Year
  Sex: Female

DRUGS (1)
  1. TYSABRI [Suspect]
     Indication: MULTIPLE SCLEROSIS
     Route: 042
     Dates: start: 20080828, end: 20100101

REACTIONS (7)
  - DECREASED APPETITE [None]
  - DRUG SPECIFIC ANTIBODY PRESENT [None]
  - HERPES ZOSTER [None]
  - INFLUENZA [None]
  - MUSCLE SPASMS [None]
  - PYREXIA [None]
  - VOMITING [None]
